FAERS Safety Report 4554643-5 (Version None)
Quarter: 2005Q1

REPORT INFORMATION
  Report Type: 
  Country: None (occurrence: None)
  Receive Date: 20041227
  Receipt Date: 20040908
  Transmission Date: 20050727
  Serious: No
  Sender: FDA-Public Use
  Company Number: US088104

PATIENT
  Sex: Female

DRUGS (9)
  1. SENSIPAR [Suspect]
     Indication: HYPERPARATHYROIDISM SECONDARY
     Dosage: 30 MG, 1 IN 1 DAYS
     Dates: start: 20040601
  2. TUMS [Concomitant]
  3. CLONAZEPAM [Concomitant]
  4. FAMOTIDINE [Concomitant]
  5. FUROSEMIDE [Concomitant]
  6. GABAPENTIN [Concomitant]
  7. INSULIN ZINC SUSPENSION [Concomitant]
  8. NEPHRO-VITE [Concomitant]
  9. WARFARIN SODIUM [Concomitant]

REACTIONS (1)
  - HYPERPHOSPHATAEMIA [None]
